FAERS Safety Report 10391929 (Version 2)
Quarter: 2014Q3

REPORT INFORMATION
  Report Type: Report from Study
  Country: RU (occurrence: RU)
  Receive Date: 20140819
  Receipt Date: 20140828
  Transmission Date: 20150326
  Serious: Yes (Disabling)
  Sender: FDA-Public Use
  Company Number: PHHY2014RU100271

PATIENT
  Age: 62 Year
  Sex: Female

DRUGS (7)
  1. ACLASTA [Suspect]
     Active Substance: ZOLEDRONIC ACID
     Indication: OSTEOPOROSIS
     Dosage: UNK
     Route: 042
     Dates: start: 20140331
  2. CALCEMIN ADVANCE [Concomitant]
     Dosage: UNK UKN, UNK
  3. LORISTA [Concomitant]
     Active Substance: LOSARTAN POTASSIUM
     Dosage: UNK
  4. ARCOXIA [Concomitant]
     Active Substance: ETORICOXIB
     Dosage: UNK
  5. MANINIL [Concomitant]
     Dosage: UNK
  6. SYMBICORT [Concomitant]
     Active Substance: BUDESONIDE\FORMOTEROL FUMARATE DIHYDRATE
     Dosage: UNK UKN, UNK
  7. L-THYROXIN [Concomitant]
     Active Substance: LEVOTHYROXINE SODIUM
     Dosage: UNK

REACTIONS (1)
  - Spinal compression fracture [Recovered/Resolved]
